FAERS Safety Report 5334464-6 (Version None)
Quarter: 2007Q2

REPORT INFORMATION
  Report Type: 
  Country: None (occurrence: None)
  Receive Date: 20070525
  Receipt Date: 20070516
  Transmission Date: 20071010
  Serious: Yes (Hospitalization)
  Sender: FDA-Public Use
  Company Number: NL-AMGEN-UK223520

PATIENT
  Age: 76 Year
  Sex: Female
  Weight: 56 kg

DRUGS (8)
  1. NEULASTA [Suspect]
     Indication: CHEMOTHERAPY
     Route: 065
  2. DOCETAXEL [Concomitant]
     Route: 065
  3. DOXORUBICIN HYDROCHLORIDE [Concomitant]
     Route: 065
  4. CYCLOPHOSPHAMIDE [Concomitant]
     Route: 065
  5. DEXAMETHASONE [Concomitant]
     Route: 048
  6. PANTOZOL [Concomitant]
     Route: 048
  7. LASIX [Concomitant]
     Route: 048
  8. INDOMETHACIN [Concomitant]
     Route: 048

REACTIONS (5)
  - BLOOD PRESSURE DECREASED [None]
  - CIRCULATORY COLLAPSE [None]
  - FALL [None]
  - SYNCOPE [None]
  - VOMITING [None]
